FAERS Safety Report 13428840 (Version 2)
Quarter: 2018Q3

REPORT INFORMATION
  Report Type: Report from Study
  Country: US (occurrence: US)
  Receive Date: 20170411
  Receipt Date: 20180704
  Transmission Date: 20181010
  Serious: Yes (Other)
  Sender: FDA-Public Use
  Company Number: US-AMGEN-USASL2017052517

PATIENT
  Age: 33 Year
  Sex: Female

DRUGS (2)
  1. ENBREL [Suspect]
     Active Substance: ETANERCEPT
     Indication: RHEUMATOID ARTHRITIS
     Dosage: 50 UNK, QWK
     Route: 065
     Dates: end: 201708
  2. ENBREL [Suspect]
     Active Substance: ETANERCEPT
     Dosage: UNK UNK, QWK
     Route: 065
     Dates: start: 20180627

REACTIONS (7)
  - Product dispensing error [Unknown]
  - Underdose [Unknown]
  - Wrong technique in product usage process [Unknown]
  - Hypoaesthesia [Unknown]
  - Hand deformity [Unknown]
  - Injection site pain [Unknown]
  - Accidental exposure to product [Unknown]
